FAERS Safety Report 11158656 (Version 1)
Quarter: 2015Q2

REPORT INFORMATION
  Report Type: Spontaneous
  Country: US (occurrence: None)
  Receive Date: 20150514
  Receipt Date: 20150514
  Transmission Date: 20150821
  Serious: Yes (Death)
  Sender: FDA-Public Use
  Company Number: 2015010039

PATIENT
  Age: 33 Year
  Sex: Female

DRUGS (10)
  1. ACETAMINOPHEN (ACETAMINOPHEN) [Suspect]
     Active Substance: ACETAMINOPHEN
  2. HYDROCODONE W/ACETAMINOPHEN (HYDROCODIONE, ACETAMINOPHEN) [Concomitant]
  3. ZOLPIDEM (ZOLPIDEM) [Suspect]
     Active Substance: ZOLPIDEM TARTRATE
  4. CLONAZEPAM (CLONAZEPAM) [Suspect]
     Active Substance: CLONAZEPAM
  5. METFORMIN [Suspect]
     Active Substance: METFORMIN HYDROCHLORIDE
  6. ARIPIPRAZOLE. [Suspect]
     Active Substance: ARIPIPRAZOLE
  7. CYCLOBENZAPRINE (CYCLOBENZAPRINE) [Suspect]
     Active Substance: CYCLOBENZAPRINE
  8. LISINOPRIL (LISINOPRIL) [Suspect]
     Active Substance: LISINOPRIL
  9. PROMETHAZINE [Suspect]
     Active Substance: PROMETHAZINE\PROMETHAZINE HYDROCHLORIDE
  10. PREGABALIN (PREGABALIN) [Suspect]
     Active Substance: PREGABALIN

REACTIONS (1)
  - Completed suicide [None]

NARRATIVE: CASE EVENT DATE: 2013
